FAERS Safety Report 23684754 (Version 1)
Quarter: 2024Q1

REPORT INFORMATION
  Report Type: Spontaneous
  Country: US (occurrence: US)
  Receive Date: 20240328
  Receipt Date: 20240328
  Transmission Date: 20240410
  Serious: No
  Sender: FDA-Public Use
  Company Number: US-INCYTE CORPORATION-2024IN002896

PATIENT

DRUGS (2)
  1. JAKAFI [Suspect]
     Active Substance: RUXOLITINIB
     Indication: Polycythaemia vera
     Dosage: 20 MILLIGRAM, 3X/WEEK, BID (MON, WED, FRI)
     Route: 048
     Dates: start: 20240221
  2. JAKAFI [Suspect]
     Active Substance: RUXOLITINIB
     Dosage: 10 MILLIGRAM, BID, 4 TIMES A WEEK (TUE, THU, SAT, SUN)
     Route: 048
     Dates: start: 20240221

REACTIONS (1)
  - Phantom limb syndrome [Unknown]
